FAERS Safety Report 26169108 (Version 1)
Quarter: 2025Q4

REPORT INFORMATION
  Report Type: Spontaneous
  Country: US (occurrence: None)
  Receive Date: 20251216
  Receipt Date: 20251216
  Transmission Date: 20260118
  Serious: Yes (Hospitalization)
  Sender: FDA-CTU
  Company Number: None

PATIENT
  Sex: Male

DRUGS (9)
  1. KESIMPTA [Suspect]
     Active Substance: OFATUMUMAB
     Indication: Multiple sclerosis
     Dosage: INJECT 1 PEN UNDER THE SKIN (SUBCUTANEOUS INJECTION) EVERY MONTH STARTING AT WEEK 4
     Route: 058
     Dates: start: 20250211
  2. CLARITIN TAB 10MG [Concomitant]
  3. FLUDROCORT TAB 0.1MG [Concomitant]
  4. FLUOCIN ACET CRE 0.01 % [Concomitant]
  5. KETOCONAZOLE [Concomitant]
     Active Substance: KETOCONAZOLE
  6. MIDODRINE TAB5MG [Concomitant]
  7. MULTIVITAMIN TAB MEN [Concomitant]
  8. VITAMIN B12 TAB 100MCG [Concomitant]
  9. VITAMIN D CAP 400UNIT [Concomitant]

REACTIONS (11)
  - Disease recurrence [None]
  - Multiple sclerosis [None]
  - Staphylococcal infection [None]
  - Mobility decreased [None]
  - Fall [None]
  - Fatigue [None]
  - Blood pressure decreased [None]
  - Heart rate increased [None]
  - Asthenia [None]
  - Anal incontinence [None]
  - Condition aggravated [None]
